FAERS Safety Report 16924927 (Version 2)
Quarter: 2019Q4

REPORT INFORMATION
  Report Type: Spontaneous
  Country: US (occurrence: US)
  Receive Date: 20191016
  Receipt Date: 20191105
  Transmission Date: 20200122
  Serious: No
  Sender: FDA-Public Use
  Company Number: US-PFIZER INC-2019443291

PATIENT
  Sex: Female

DRUGS (1)
  1. DIFLUCAN [Suspect]
     Active Substance: FLUCONAZOLE
     Indication: FUNGAL INFECTION
     Dosage: 150 MG (150MG EVERY 3 DAYS)

REACTIONS (4)
  - Drug ineffective [Unknown]
  - Disturbance in attention [Unknown]
  - Off label use [Unknown]
  - Pruritus [Unknown]
